FAERS Safety Report 21239121 (Version 1)
Quarter: 2022Q3

REPORT INFORMATION
  Report Type: Spontaneous
  Country: US (occurrence: US)
  Receive Date: 20220822
  Receipt Date: 20220822
  Transmission Date: 20221027
  Serious: Yes (Other)
  Sender: FDA-Public Use
  Company Number: US-COLGATE PALMOLIVE COMPANY-20220801519

PATIENT
  Sex: Female

DRUGS (1)
  1. COLGATE CAVITY PROTECTION FRESH MINT [Suspect]
     Active Substance: SODIUM FLUORIDE
     Dosage: UNKNOWN DOSE
     Dates: start: 20220808, end: 20220808

REACTIONS (3)
  - Lip haemorrhage [Unknown]
  - Lip swelling [Recovering/Resolving]
  - Mouth swelling [Recovering/Resolving]

NARRATIVE: CASE EVENT DATE: 20220808
